FAERS Safety Report 4459692-3 (Version None)
Quarter: 2004Q3

REPORT INFORMATION
  Report Type: 
  Country: None (occurrence: None)
  Receive Date: 20040928
  Receipt Date: 20040916
  Transmission Date: 20050211
  Serious: Yes (Hospitalization)
  Sender: FDA-Public Use
  Company Number: FR-JNJFOC-20040905435

PATIENT
  Age: 54 Year
  Sex: Female

DRUGS (18)
  1. REMICADE [Suspect]
     Indication: RHEUMATOID ARTHRITIS
     Route: 042
  2. DOLIPRANE [Suspect]
     Indication: DRUG USE FOR UNKNOWN INDICATION
     Route: 049
  3. NEXEN [Suspect]
     Indication: DRUG USE FOR UNKNOWN INDICATION
     Route: 049
  4. NOVATREX [Suspect]
     Indication: RHEUMATOID ARTHRITIS
     Route: 049
  5. CORTANCYL [Concomitant]
  6. ZAMUDOL [Concomitant]
  7. MOPRAL [Concomitant]
  8. CACIT D3 [Concomitant]
  9. CACIT D3 [Concomitant]
  10. TORENTAL [Concomitant]
     Dosage: 400
  11. PERSANTIN INJ [Concomitant]
  12. PRAXILENE [Concomitant]
  13. GLICAZIDE [Concomitant]
  14. FLUDEX [Concomitant]
  15. ZESTORETIC [Concomitant]
  16. ZESTORETIC [Concomitant]
  17. OESCLIM [Concomitant]
  18. ACTONEL [Concomitant]

REACTIONS (4)
  - CYTOLYTIC HEPATITIS [None]
  - HYPERTRIGLYCERIDAEMIA [None]
  - MACROCYTOSIS [None]
  - PYELONEPHRITIS [None]
